FAERS Safety Report 5359945-0 (Version None)
Quarter: 2007Q2

REPORT INFORMATION
  Report Type: 
  Country: None (occurrence: None)
  Receive Date: 20070530
  Receipt Date: 20070202
  Transmission Date: 20071010
  Serious: No
  Sender: FDA-Public Use
  Company Number: 2007PV029462

PATIENT
  Age: 53 Year
  Sex: Female

DRUGS (5)
  1. BYETTA [Suspect]
     Dosage: SEE IMAGE
     Route: 058
     Dates: start: 20070125, end: 20070131
  2. BYETTA [Suspect]
     Dosage: SEE IMAGE
     Route: 058
     Dates: start: 20070201
  3. METFORMIN HCL [Concomitant]
  4. MOBIC [Concomitant]
  5. CLARITIN [Concomitant]

REACTIONS (2)
  - INJECTION SITE URTICARIA [None]
  - PARAESTHESIA ORAL [None]
